FAERS Safety Report 13397633 (Version 3)
Quarter: 2017Q2

REPORT INFORMATION
  Report Type: Spontaneous
  Country: FR (occurrence: FR)
  Receive Date: 20170403
  Receipt Date: 20170427
  Transmission Date: 20170830
  Serious: Yes (Hospitalization)
  Sender: FDA-Public Use
  Company Number: FR-SA-2017SA049691

PATIENT
  Age: 63 Year
  Sex: Male

DRUGS (15)
  1. RIFADINE [Suspect]
     Active Substance: RIFAMPIN
     Indication: OSTEITIS
     Dosage: POWDER AND SOLVENT SOLUTION FOR INFUSION
     Route: 042
     Dates: start: 20170301, end: 20170303
  2. VANCOMYCIN [Concomitant]
     Active Substance: VANCOMYCIN
     Indication: OSTEITIS
     Dates: start: 20170224, end: 20170301
  3. CRESTOR [Concomitant]
     Active Substance: ROSUVASTATIN CALCIUM
  4. DALACINE [Suspect]
     Active Substance: CLINDAMYCIN HYDROCHLORIDE
     Indication: OSTEITIS
     Dosage: ROUTE-IV
     Route: 042
     Dates: start: 20170301, end: 20170303
  5. LYRICA [Suspect]
     Active Substance: PREGABALIN
     Indication: PROCEDURAL PAIN
     Route: 048
     Dates: start: 20170302, end: 20170303
  6. LOVENOX [Concomitant]
     Active Substance: ENOXAPARIN SODIUM
  7. LAROXYL [Suspect]
     Active Substance: AMITRIPTYLINE
     Indication: PROCEDURAL PAIN
     Dosage: DOSE-50 MG/ML
     Route: 042
     Dates: start: 20170302, end: 20170303
  8. ZAMUDOL [Suspect]
     Active Substance: TRAMADOL HYDROCHLORIDE
     Indication: PROCEDURAL PAIN
     Route: 048
     Dates: start: 20170302, end: 20170302
  9. TAZOCILLINE [Concomitant]
     Active Substance: PIPERACILLIN SODIUM\TAZOBACTAM SODIUM
     Dates: start: 20170209
  10. GALVUS [Concomitant]
     Active Substance: VILDAGLIPTIN
  11. NORSET [Concomitant]
     Active Substance: MIRTAZAPINE
  12. AMIKACIN [Concomitant]
     Active Substance: AMIKACIN
     Dates: start: 20170209, end: 20170224
  13. CILASTATIN/IMIPENEM [Suspect]
     Active Substance: CILASTATIN SODIUM\IMIPENEM
     Indication: OSTEITIS
     Dosage: DOSE STRENGTH-500 MG/500 MG
     Route: 042
     Dates: start: 20170222, end: 20170307
  14. CEFOTAXIME [Concomitant]
     Active Substance: CEFOTAXIME SODIUM
  15. SERESTA [Concomitant]
     Active Substance: OXAZEPAM

REACTIONS (3)
  - Confusional state [Recovered/Resolved]
  - Myoclonus [Recovered/Resolved]
  - Hallucination, visual [Recovered/Resolved]

NARRATIVE: CASE EVENT DATE: 20170304
